FAERS Safety Report 6578452-0 (Version None)
Quarter: 2010Q1

REPORT INFORMATION
  Report Type: 
  Country: None (occurrence: None)
  Receive Date: 20100211
  Receipt Date: 20100201
  Transmission Date: 20100710
  Serious: Yes (Life-Threatening)
  Sender: FDA-Public Use
  Company Number: IT-GENENTECH-297785

PATIENT
  Sex: Female

DRUGS (10)
  1. MABTHERA [Suspect]
     Indication: DIFFUSE LARGE B-CELL LYMPHOMA
     Dosage: 720 MG, UNK
     Route: 042
     Dates: start: 20100119, end: 20100119
  2. ENDOXAN [Suspect]
     Indication: DIFFUSE LARGE B-CELL LYMPHOMA
     Dosage: 1080 MG, UNK
     Route: 042
     Dates: start: 20100119, end: 20100119
  3. VINCRISTINE [Suspect]
     Indication: DIFFUSE LARGE B-CELL LYMPHOMA
     Dosage: 2 MG, UNK
     Route: 042
     Dates: start: 20100119, end: 20100119
  4. PREDNISONE TAB [Concomitant]
     Indication: DRUG USE FOR UNKNOWN INDICATION
     Dosage: 120 MG, UNK
     Dates: start: 20100119, end: 20100121
  5. ATARAX [Concomitant]
     Indication: DRUG USE FOR UNKNOWN INDICATION
     Dosage: 50 MG, UNK
     Route: 042
  6. SOLU-CORTEF [Concomitant]
     Indication: DRUG USE FOR UNKNOWN INDICATION
     Dosage: 250 MG, UNK
     Route: 042
  7. TACHIPIRINA [Concomitant]
     Indication: DRUG USE FOR UNKNOWN INDICATION
     Dosage: 1 G, UNK
     Route: 048
  8. NAVOBAN [Concomitant]
     Indication: DRUG USE FOR UNKNOWN INDICATION
     Dosage: 5 MG, UNK
     Route: 042
  9. ZANTAC [Concomitant]
     Indication: DRUG USE FOR UNKNOWN INDICATION
     Dosage: 50 MG, UNK
     Route: 042
  10. SALINE [Concomitant]
     Indication: DRUG USE FOR UNKNOWN INDICATION
     Dosage: 1000 ML, UNK

REACTIONS (2)
  - DYSPNOEA [None]
  - OLIGURIA [None]
